FAERS Safety Report 11860612 (Version 3)
Quarter: 2016Q2

REPORT INFORMATION
  Report Type: Spontaneous
  Country: JP (occurrence: JP)
  Receive Date: 20151222
  Receipt Date: 20160404
  Transmission Date: 20160815
  Serious: Yes (Life-Threatening, Hospitalization, Disabling)
  Sender: FDA-Public Use
  Company Number: JP-MYLANLABS-2015M1045109

PATIENT

DRUGS (7)
  1. PACLITAXEL. [Suspect]
     Active Substance: PACLITAXEL
     Indication: POSTOPERATIVE CARE
  2. PACLITAXEL. [Suspect]
     Active Substance: PACLITAXEL
     Indication: OVARIAN CANCER
     Dosage: ????
     Route: 041
     Dates: start: 201302, end: 201310
  3. CARBOPLATIN MYLAN [Suspect]
     Active Substance: CARBOPLATIN
     Indication: OVARIAN CANCER
     Dosage: 150 MG, QD
     Route: 041
     Dates: start: 201303, end: 201311
  4. GEMCITABINE HYDROCHLORIDE. [Concomitant]
     Active Substance: GEMCITABINE HYDROCHLORIDE
     Indication: OVARIAN CANCER
     Dosage: 800 MG, BID
     Route: 041
  5. GRANISETRON [Concomitant]
     Active Substance: GRANISETRON
     Indication: OVARIAN CANCER
     Dosage: 3 MG, QD
     Route: 041
     Dates: start: 20140731, end: 20141126
  6. CARBOPLATIN MYLAN [Suspect]
     Active Substance: CARBOPLATIN
     Indication: POSTOPERATIVE CARE
     Dosage: 150 MG, QD
     Route: 041
     Dates: start: 20140731, end: 20141126
  7. DEXART [Concomitant]
     Active Substance: DEXAMETHASONE SODIUM PHOSPHATE
     Indication: OVARIAN CANCER
     Route: 041

REACTIONS (2)
  - Hypersensitivity [Recovering/Resolving]
  - Enterocutaneous fistula [Not Recovered/Not Resolved]

NARRATIVE: CASE EVENT DATE: 20140828
